FAERS Safety Report 6034802-5 (Version None)
Quarter: 2009Q1

REPORT INFORMATION
  Report Type: 
  Country: None (occurrence: None)
  Receive Date: 20090112
  Receipt Date: 20090102
  Transmission Date: 20090719
  Serious: Yes (Other)
  Sender: FDA-Public Use
  Company Number: GB-ELI_LILLY_AND_COMPANY-GB200901000150

PATIENT
  Age: 61 Year
  Sex: Female

DRUGS (6)
  1. OLANZAPINE [Suspect]
     Indication: DEPRESSION
     Dosage: 5 MG, UNK
     Route: 048
     Dates: start: 20081212, end: 20081215
  2. MIRTAZAPINE [Concomitant]
     Indication: PSYCHOTIC DISORDER
     Dosage: 15 MG, UNK
     Route: 048
     Dates: start: 20081212, end: 20081216
  3. LEVETIRACETAM [Concomitant]
     Indication: EPILEPSY
     Dosage: 750 MG, 2/D
     Route: 048
     Dates: start: 20080901
  4. LEVOTHYROXINE SODIUM [Concomitant]
     Indication: HYPOTHYROIDISM
     Dosage: 150 UG, DAILY (1/D)
     Route: 048
  5. PHENYTOIN [Concomitant]
     Indication: EPILEPSY
     Dosage: 350 MG, DAILY (1/D)
     Route: 048
  6. THIAMINE HCL [Concomitant]
     Indication: VITAMIN B COMPLEX DEFICIENCY
     Dosage: 200 MG, DAILY (1/D)
     Route: 048

REACTIONS (4)
  - LYMPHOCYTE COUNT DECREASED [None]
  - NEUTROPHIL COUNT DECREASED [None]
  - PLATELET COUNT DECREASED [None]
  - WHITE BLOOD CELL COUNT DECREASED [None]
